FAERS Safety Report 15668105 (Version 2)
Quarter: 2018Q4

REPORT INFORMATION
  Report Type: Report from Study
  Country: None (occurrence: CA)
  Receive Date: 20181129
  Receipt Date: 20181203
  Transmission Date: 20190205
  Serious: Yes (Other)
  Sender: FDA-Public Use
  Company Number: CA-ABBVIE-18K-028-2550076-00

PATIENT
  Sex: Female

DRUGS (1)
  1. HUMIRA [Suspect]
     Active Substance: ADALIMUMAB
     Indication: CROHN^S DISEASE
     Route: 058
     Dates: start: 20170115

REACTIONS (5)
  - Amenorrhoea [Not Recovered/Not Resolved]
  - Vaginal abscess [Recovered/Resolved]
  - Mammogram abnormal [Unknown]
  - Polyp [Recovered/Resolved]
  - Vaginal abscess [Recovering/Resolving]

NARRATIVE: CASE EVENT DATE: 2017
